FAERS Safety Report 9347928 (Version 1)
Quarter: 2013Q2

REPORT INFORMATION
  Report Type: Spontaneous
  Country: NL (occurrence: NL)
  Receive Date: 20130614
  Receipt Date: 20130614
  Transmission Date: 20140414
  Serious: Yes (Hospitalization)
  Sender: FDA-Public Use
  Company Number: NL-TEVA-410801ISR

PATIENT
  Age: 50 Year
  Sex: Female
  Weight: 66 kg

DRUGS (1)
  1. IBUPROFEN TABLET 600MG [Suspect]
     Indication: PAIN
     Dosage: 600 MILLIGRAM DAILY; 1 TIME A DAY 1 PIECE
     Route: 048
     Dates: start: 20130430

REACTIONS (1)
  - Gastric perforation [Recovered/Resolved]
